FAERS Safety Report 9171333 (Version 1)
Quarter: 2013Q1

REPORT INFORMATION
  Report Type: Spontaneous
  Country: US (occurrence: None)
  Receive Date: 20130206
  Receipt Date: 20130206
  Transmission Date: 20140127
  Serious: Yes (Hospitalization, Other)
  Sender: FDA-Public Use
  Company Number: 2013PROUSA02467

PATIENT
  Age: 80 Year
  Sex: Male
  Weight: 105 kg

DRUGS (2)
  1. PROVENGE (SIPULEUCEL-T) SUSPENSION, 250 ML [Suspect]
     Indication: PROSTATE CANCER METASTATIC
     Route: 042
     Dates: start: 20130110, end: 20130110
  2. ZOMETA (ZOLEDRONIC ACID) [Concomitant]

REACTIONS (5)
  - Hypotension [None]
  - Pyrexia [None]
  - Dizziness [None]
  - Dehydration [None]
  - Poor venous access [None]
